FAERS Safety Report 17803793 (Version 1)
Quarter: 2020Q2

REPORT INFORMATION
  Report Type: Spontaneous
  Country: CA (occurrence: CA)
  Receive Date: 20200519
  Receipt Date: 20200519
  Transmission Date: 20200714
  Serious: Yes (Hospitalization, Other)
  Sender: FDA-Public Use
  Company Number: CA-PFIZER INC-2020197798

PATIENT
  Age: 15 Year
  Sex: Male

DRUGS (4)
  1. VANCOMYCIN HCL [Suspect]
     Active Substance: VANCOMYCIN HYDROCHLORIDE
     Dosage: 500 MG, 4X/DAY
     Dates: start: 2018, end: 20180530
  2. DOXYCLINE [DOXYCYCLINE] [Suspect]
     Active Substance: DOXYCYCLINE
     Indication: COLITIS
     Dosage: UNK
     Dates: start: 201803, end: 2018
  3. VANCOMYCIN HCL [Suspect]
     Active Substance: VANCOMYCIN HYDROCHLORIDE
     Indication: COLITIS
     Dosage: UNK
     Dates: start: 201803, end: 2018
  4. AMOXICILLIN. [Suspect]
     Active Substance: AMOXICILLIN
     Indication: COLITIS
     Dosage: UNK
     Dates: start: 201803, end: 2018

REACTIONS (2)
  - Colitis ulcerative [Unknown]
  - Clostridium difficile colitis [Recovered/Resolved]

NARRATIVE: CASE EVENT DATE: 201804
